FAERS Safety Report 21585682 (Version 4)
Quarter: 2022Q4

REPORT INFORMATION
  Report Type: Report from Study
  Country: US (occurrence: US)
  Receive Date: 20221111
  Receipt Date: 20221207
  Transmission Date: 20230112
  Serious: No
  Sender: FDA-Public Use
  Company Number: US-ABBVIE-4196866

PATIENT
  Age: 60 Year
  Sex: Male

DRUGS (2)
  1. IMBRUVICA [Suspect]
     Active Substance: IBRUTINIB
     Indication: B-cell small lymphocytic lymphoma
     Route: 048
     Dates: start: 202201
  2. IMBRUVICA [Suspect]
     Active Substance: IBRUTINIB
     Indication: B-cell small lymphocytic lymphoma
     Dosage: DRUG RESTARTED
     Route: 048
     Dates: start: 2022

REACTIONS (19)
  - Haemorrhage [Unknown]
  - Oral pain [Unknown]
  - Rash erythematous [Unknown]
  - Sleep disorder [Unknown]
  - Pain in extremity [Unknown]
  - Hypoaesthesia oral [Unknown]
  - Dysphonia [Unknown]
  - Respiratory disorder [Unknown]
  - Eye disorder [Unknown]
  - Diarrhoea [Unknown]
  - Feeling of body temperature change [Unknown]
  - Red blood cell count decreased [Unknown]
  - Tremor [Unknown]
  - Unevaluable event [Unknown]
  - Salivary gland disorder [Unknown]
  - Rash macular [Unknown]
  - Gingival ulceration [Recovering/Resolving]
  - Mouth ulceration [Unknown]
  - Tongue ulceration [Recovering/Resolving]

NARRATIVE: CASE EVENT DATE: 20221001
